FAERS Safety Report 20197646 (Version 2)
Quarter: 2021Q4

REPORT INFORMATION
  Report Type: Other
  Country: GB (occurrence: None)
  Receive Date: 20211217
  Receipt Date: 20211223
  Transmission Date: 20220303
  Serious: Yes (Death, Other)
  Sender: FDA-Public Use
  Company Number: GB-ROCHE-2972270

PATIENT
  Sex: Male

DRUGS (2)
  1. ESBRIET [Suspect]
     Active Substance: PIRFENIDONE
     Indication: Idiopathic pulmonary fibrosis
     Dosage: 3 TABLETS TO BE TAKEN 3 TIMES A DAY
     Route: 048
     Dates: start: 202111
  2. OXYGEN [Concomitant]
     Active Substance: OXYGEN

REACTIONS (2)
  - Dyspnoea [Unknown]
  - Death [Fatal]
